FAERS Safety Report 6990731-1 (Version None)
Quarter: 2010Q3

REPORT INFORMATION
  Report Type: 
  Country: None (occurrence: None)
  Receive Date: 20100916
  Receipt Date: 20100805
  Transmission Date: 20110219
  Serious: Yes (Other)
  Sender: FDA-Public Use
  Company Number: FR-PFIZER INC-2010018236

PATIENT
  Sex: Male

DRUGS (2)
  1. LYRICA [Suspect]
     Indication: NEURALGIA
     Dosage: 400 MG, PER DAY
     Route: 048
     Dates: start: 20090902, end: 20090923
  2. CODOLIPRANE [Concomitant]
     Indication: NEURALGIA
     Dosage: AS NEEDED
     Route: 048
     Dates: start: 20090702

REACTIONS (2)
  - HYPERMETROPIA [None]
  - VISUAL IMPAIRMENT [None]
